FAERS Safety Report 11024107 (Version 1)
Quarter: 2015Q2

REPORT INFORMATION
  Report Type: Spontaneous
  Country: US (occurrence: SG)
  Receive Date: 20150413
  Receipt Date: 20150413
  Transmission Date: 20150821
  Serious: Yes (Disabling)
  Sender: FDA-Public Use
  Company Number: SG-FRI-1000075741

PATIENT
  Age: 20 Year
  Sex: Female

DRUGS (2)
  1. LITHIUM. [Concomitant]
     Active Substance: LITHIUM
     Dates: start: 201410
  2. SAPHRIS [Suspect]
     Active Substance: ASENAPINE MALEATE
     Route: 060
     Dates: start: 201410

REACTIONS (1)
  - Urinary incontinence [Recovered/Resolved]
